FAERS Safety Report 19222290 (Version 1)
Quarter: 2021Q2

REPORT INFORMATION
  Report Type: Spontaneous
  Country: US (occurrence: US)
  Receive Date: 20210505
  Receipt Date: 20210505
  Transmission Date: 20210717
  Serious: Yes (Hospitalization)
  Sender: FDA-Public Use
  Company Number: None

PATIENT
  Sex: Female

DRUGS (14)
  1. FUROSEMIDE. [Concomitant]
     Active Substance: FUROSEMIDE
  2. METOPROL TAR [Concomitant]
  3. JARDIANCE [Concomitant]
     Active Substance: EMPAGLIFLOZIN
  4. VIT D [Concomitant]
     Active Substance: VITAMIN D NOS
  5. TRIAMCINOLON [Concomitant]
  6. PROMACTA [Concomitant]
     Active Substance: ELTROMBOPAG OLAMINE
  7. NADOLOL. [Concomitant]
     Active Substance: NADOLOL
  8. VIRTUSSIN [Concomitant]
  9. FERROUS SULF [Concomitant]
     Active Substance: FERROUS SULFATE
  10. FIRVANQ [Concomitant]
     Active Substance: VANCOMYCIN HYDROCHLORIDE
  11. GLIPIZIDE. [Concomitant]
     Active Substance: GLIPIZIDE
  12. SPIRONOLACT [Concomitant]
     Active Substance: SPIRONOLACTONE
  13. VANCOMYCIN [Concomitant]
     Active Substance: VANCOMYCIN
  14. PROMACTA [Suspect]
     Active Substance: ELTROMBOPAG OLAMINE
     Indication: THROMBOCYTOPENIA
     Route: 048
     Dates: start: 20201204

REACTIONS (2)
  - Hospitalisation [None]
  - Therapy interrupted [None]
